FAERS Safety Report 10287112 (Version 2)
Quarter: 2015Q2

REPORT INFORMATION
  Report Type: Report from Study
  Country: US (occurrence: US)
  Receive Date: 20140709
  Receipt Date: 20150521
  Transmission Date: 20150821
  Serious: Yes (Hospitalization)
  Sender: FDA-Public Use
  Company Number: US-SA-2014SA087690

PATIENT
  Age: 81 Year
  Sex: Female

DRUGS (3)
  1. LANTUS [Suspect]
     Active Substance: INSULIN GLARGINE
     Indication: DIABETES MELLITUS
     Dosage: DOSE:80 UNIT(S)
     Route: 058
     Dates: end: 20150513
  2. LANTUS [Suspect]
     Active Substance: INSULIN GLARGINE
     Indication: DIABETES MELLITUS
     Dosage: DOSE:40 UNIT(S)
     Route: 065
  3. LANTUS [Suspect]
     Active Substance: INSULIN GLARGINE
     Indication: DIABETES MELLITUS
     Dosage: DOSE:50 UNIT(S)
     Route: 065

REACTIONS (11)
  - Skin mass [Recovering/Resolving]
  - Malaise [Recovering/Resolving]
  - Irritability [Unknown]
  - Dementia [Recovering/Resolving]
  - Drug administration error [Unknown]
  - Adverse event [Unknown]
  - Weight decreased [Unknown]
  - Fluid retention [Unknown]
  - Contusion [Recovering/Resolving]
  - Angioplasty [Unknown]
  - Fall [Unknown]

NARRATIVE: CASE EVENT DATE: 201504
